FAERS Safety Report 9181841 (Version 2)
Quarter: 2013Q2

REPORT INFORMATION
  Report Type: Spontaneous
  Country: US (occurrence: None)
  Receive Date: 20120531
  Receipt Date: 20130130
  Transmission Date: 20140414
  Serious: Yes (Hospitalization, Other)
  Sender: FDA-Public Use
  Company Number: US201201007340

PATIENT
  Age: 41 Year
  Sex: Male

DRUGS (1)
  1. BYETTA [Suspect]

REACTIONS (3)
  - Pancreatitis acute [None]
  - Alcoholic pancreatitis [None]
  - Leukocytosis [None]
